FAERS Safety Report 6290687-3 (Version None)
Quarter: 2009Q3

REPORT INFORMATION
  Report Type: 
  Country: None (occurrence: None)
  Receive Date: 20090730
  Receipt Date: 20090720
  Transmission Date: 20100115
  Serious: Yes (Death, Hospitalization, Other)
  Sender: FDA-Public Use
  Company Number: HQWYE554405MAY05

PATIENT
  Sex: Female

DRUGS (1)
  1. EFFEXOR XR [Suspect]
     Dosage: APPROXIMATELY 100 CAPSULES, (150 MG) (OVERDOSE AMOUNT)
     Route: 048
     Dates: start: 20050427, end: 20050427

REACTIONS (11)
  - ACUTE RESPIRATORY DISTRESS SYNDROME [None]
  - ASPIRATION [None]
  - BEZOAR [None]
  - CEREBRAL INFARCTION [None]
  - COMPLETED SUICIDE [None]
  - CONVULSION [None]
  - DEPRESSED LEVEL OF CONSCIOUSNESS [None]
  - HYPOTENSION [None]
  - INTENTIONAL OVERDOSE [None]
  - RENAL FAILURE [None]
  - RESPIRATORY ARREST [None]
